FAERS Safety Report 25193951 (Version 1)
Quarter: 2025Q2

REPORT INFORMATION
  Report Type: Spontaneous
  Country: US (occurrence: US)
  Receive Date: 20250414
  Receipt Date: 20250414
  Transmission Date: 20250716
  Serious: No
  Sender: SANOFI AVENTIS
  Company Number: US-SA-2025SA103602

PATIENT
  Age: 2 Year
  Sex: Male

DRUGS (2)
  1. CEREZYME [Suspect]
     Active Substance: IMIGLUCERASE
     Indication: Gaucher^s disease type II
     Dosage: 60 IU/KG, QOW
  2. CEREZYME [Suspect]
     Active Substance: IMIGLUCERASE
     Dosage: 30 IU/KG, QW

REACTIONS (5)
  - Gaucher^s disease type II [Unknown]
  - Condition aggravated [Unknown]
  - Therapeutic product effect decreased [Unknown]
  - Discomfort [Unknown]
  - Off label use [Unknown]
